FAERS Safety Report 20490673 (Version 3)
Quarter: 2022Q1

REPORT INFORMATION
  Report Type: Spontaneous
  Country: US (occurrence: US)
  Receive Date: 20220218
  Receipt Date: 20220315
  Transmission Date: 20220424
  Serious: Yes (Other)
  Sender: FDA-Public Use
  Company Number: US-BAYER-2022A022256

PATIENT
  Age: 25 Year
  Sex: Female
  Weight: 87.99 kg

DRUGS (1)
  1. MIRENA [Suspect]
     Active Substance: LEVONORGESTREL
     Indication: Contraception
     Dosage: 20?G/DAY
     Route: 015
     Dates: start: 20210414

REACTIONS (2)
  - Ruptured ectopic pregnancy [Recovered/Resolved]
  - Drug ineffective [None]
